FAERS Safety Report 8409402 (Version 2)
Quarter: 2013Q4

REPORT INFORMATION
  Report Type: Spontaneous
  Country: US (occurrence: US)
  Receive Date: 20120216
  Receipt Date: 20131111
  Transmission Date: 20140711
  Serious: Yes (Hospitalization)
  Sender: FDA-Public Use
  Company Number: US-GLAXOSMITHKLINE-A0913458A

PATIENT
  Age: 59 Year
  Sex: Male
  Weight: 130 kg

DRUGS (3)
  1. AVANDAMET [Suspect]
     Indication: DIABETES MELLITUS
     Route: 048
     Dates: start: 200407, end: 200807
  2. AVANDIA [Suspect]
     Indication: DIABETES MELLITUS
     Dosage: 4MG TWICE PER DAY
     Route: 048
     Dates: start: 200505
  3. METFORMIN [Concomitant]
     Dosage: 500MG TWICE PER DAY
     Dates: start: 200505

REACTIONS (3)
  - Acute myocardial infarction [Unknown]
  - Cardiovascular disorder [Unknown]
  - Cardiac disorder [Unknown]
